FAERS Safety Report 8767292 (Version 2)
Quarter: 2012Q4

REPORT INFORMATION
  Report Type: 
  Country: JP (occurrence: JP)
  Receive Date: 20120904
  Receipt Date: 20120913
  Transmission Date: 20130627
  Serious: Yes (Hospitalization)
  Sender: FDA-Public Use
  Company Number: JP-GLAXOSMITHKLINE-B0827240A

PATIENT
  Age: 63 Year
  Sex: Male

DRUGS (3)
  1. PAXIL [Suspect]
     Indication: DEPRESSION
     Dosage: 20MG Per day
     Route: 048
  2. RISPERDAL [Concomitant]
     Dosage: 2MG Twice per day
     Route: 048
  3. WYPAX [Concomitant]
     Dosage: .5MG Twice per day
     Route: 048

REACTIONS (4)
  - Altered state of consciousness [Unknown]
  - Disorientation [Not Recovered/Not Resolved]
  - Blood albumin decreased [Unknown]
  - Inflammation [Unknown]
